FAERS Safety Report 17872040 (Version 1)
Quarter: 2020Q2

REPORT INFORMATION
  Report Type: Report from Study
  Country: US (occurrence: US)
  Receive Date: 20200608
  Receipt Date: 20200608
  Transmission Date: 20200714
  Serious: Yes (Death)
  Sender: FDA-Public Use
  Company Number: US-PFIZER INC-2020219976

PATIENT

DRUGS (31)
  1. DOXORUBICIN HCL [Suspect]
     Active Substance: DOXORUBICIN HYDROCHLORIDE
     Indication: ACUTE LYMPHOCYTIC LEUKAEMIA RECURRENT
     Dosage: 60 MG/M2,  IN WEEK 1
     Route: 042
  2. CYTARABINE. [Suspect]
     Active Substance: CYTARABINE
     Dosage: 3000 MG/M2, Q12 HRS FOR 4 DOSES, IN WEEKS 33 AND 51
     Route: 042
  3. MERCAPTOPURINE. [Suspect]
     Active Substance: MERCAPTOPURINE
     Indication: ACUTE LYMPHOCYTIC LEUKAEMIA RECURRENT
     Dosage: 50 MG/M2 DAILY FOR 5 DAYS, IN WEEKS 18, 21, 24, 27
     Route: 048
  4. ETOPOSIDE. [Suspect]
     Active Substance: ETOPOSIDE
     Indication: ACUTE LYMPHOCYTIC LEUKAEMIA RECURRENT
     Dosage: 100 MG/M2/DAY IV FOR 5 DAYS IN WEEK 6
     Route: 042
  5. DEXAMETHASONE. [Suspect]
     Active Substance: DEXAMETHASONE
     Indication: ACUTE LYMPHOCYTIC LEUKAEMIA RECURRENT
     Dosage: 10 MG/M2/DAY PO DIVIDED (BID), DAYS 1-7, 15-21 (IN WEEKS 28 AND 30)
  6. METHOTREXATE SODIUM. [Suspect]
     Active Substance: METHOTREXATE SODIUM
     Dosage: 5 GRAMS/M2 IV OVER 24 HOURS, IN WEEKS 36, 54
     Route: 042
  7. G-CSF [Suspect]
     Active Substance: GRANULOCYTE COLONY-STIMULATING FACTOR NOS
     Dosage: 5 UG/KG, DAILY, SUBQ/IV, IN WEEK 12
  8. ETOPOSIDE. [Suspect]
     Active Substance: ETOPOSIDE
     Dosage: 300 MG/M2 IV, IN WEEKS 37, 55
     Route: 042
  9. PEGASPARGASE [Suspect]
     Active Substance: PEGASPARGASE
     Dosage: 2500 INTERNATIONAL UNITS/M2 IM, IN WEEKS 33, 52
     Route: 030
  10. G-CSF [Suspect]
     Active Substance: GRANULOCYTE COLONY-STIMULATING FACTOR NOS
     Indication: ACUTE LYMPHOCYTIC LEUKAEMIA RECURRENT
     Dosage: 5 UG/KG, DAILY, SUBQ/IV, IN WEEK 6
  11. L-ASPARAGINASE [Suspect]
     Active Substance: ASPARAGINASE
     Indication: ACUTE LYMPHOCYTIC LEUKAEMIA RECURRENT
     Dosage: 6000 INTERNATIONAL UNITS/M^2 IM, IN WEEKS 11 AND 12
  12. METHOTREXATE SODIUM. [Suspect]
     Active Substance: METHOTREXATE SODIUM
     Dosage: DOSE BY AGE, IN WEEKS 6 AND 9
     Route: 037
  13. METHOTREXATE SODIUM. [Suspect]
     Active Substance: METHOTREXATE SODIUM
     Dosage: DOSE BY AGE, IN WEEKS 28, 31
     Route: 037
  14. LEUCOVORIN. [Suspect]
     Active Substance: LEUCOVORIN
     Dosage: 15 MG/M2 IV/PO Q6 HRS FOR 3 DOSES AT MINIMUM STARTING AT HOUR 42, IN WEEKS 36, 54
  15. VINCRISTINE SULFATE. [Suspect]
     Active Substance: VINCRISTINE SULFATE
     Indication: ACUTE LYMPHOCYTIC LEUKAEMIA RECURRENT
     Dosage: WEEKS 1-4, 18, 21, 24, 27, 28, 29, 30, 36, 37,54, 55
     Route: 042
  16. DOXORUBICIN HCL [Suspect]
     Active Substance: DOXORUBICIN HYDROCHLORIDE
     Dosage: 25 MG/M2, IN WEEKS 28, 29, 30
     Route: 042
  17. METHOTREXATE SODIUM. [Suspect]
     Active Substance: METHOTREXATE SODIUM
     Indication: ACUTE LYMPHOCYTIC LEUKAEMIA RECURRENT
     Dosage: DOSE BY AGE, ON DAYS 15, 29 (WEEKS 3 AND 5)
     Route: 037
  18. METHOTREXATE SODIUM. [Suspect]
     Active Substance: METHOTREXATE SODIUM
     Dosage: 5 GRAMS/M2 IV OVER 24 HOURS, IN WEEKS 18, 21, 24, 27
     Route: 042
  19. METHOTREXATE SODIUM. [Suspect]
     Active Substance: METHOTREXATE SODIUM
     Dosage: DOSE BY AGE, IN WEEK 38
     Route: 037
  20. G-CSF [Suspect]
     Active Substance: GRANULOCYTE COLONY-STIMULATING FACTOR NOS
     Dosage: 5 UG/KG, DAILY, SUBQ/IV, IN WEEKS 34, 52
  21. CYCLOPHOSPHAMIDE. [Suspect]
     Active Substance: CYCLOPHOSPHAMIDE
     Indication: ACUTE LYMPHOCYTIC LEUKAEMIA RECURRENT
     Dosage: 500 MG/M2, CYCLIC (WEEKS 33-56)
     Route: 042
  22. CYTARABINE. [Suspect]
     Active Substance: CYTARABINE
     Indication: ACUTE LYMPHOCYTIC LEUKAEMIA RECURRENT
     Dosage: DOSE BY AGE, ON DAY 1 ONLY (WEEK 1)
     Route: 037
  23. PEGASPARGASE [Suspect]
     Active Substance: PEGASPARGASE
     Indication: ACUTE LYMPHOCYTIC LEUKAEMIA RECURRENT
     Dosage: 2500 INTERNATIONAL UNITS/M2 IN WEEKS 1-4
     Route: 030
  24. LEUCOVORIN. [Suspect]
     Active Substance: LEUCOVORIN
     Indication: ACUTE LYMPHOCYTIC LEUKAEMIA RECURRENT
     Dosage: 15 MG/M2 IV/PO Q6 HRS FOR 3 DOSES AT MINIMUM STARTING AT HOUR 42, IN WEEKS 6, 18, 21, 24, 27
  25. ETOPOSIDE. [Suspect]
     Active Substance: ETOPOSIDE
     Dosage: 300 MG/M2 IV, IN WEEKS 16, 19, 22, 25
     Route: 042
  26. METHOTREXATE SODIUM. [Suspect]
     Active Substance: METHOTREXATE SODIUM
     Dosage: 5 GRAMS/M2 IV OVER 24 HOURS IN WEEK 9
     Route: 042
  27. PEGASPARGASE [Suspect]
     Active Substance: PEGASPARGASE
     Dosage: 2500 INTERNATIONAL UNITS/M2 IM, IN WEEKS 28, 30
     Route: 030
  28. MERCAPTOPURINE. [Suspect]
     Active Substance: MERCAPTOPURINE
     Dosage: 50 MG/M2 DAILY FOR 5 DAYS, IN WEEKS 36 AND 54
     Route: 048
  29. CYTARABINE. [Suspect]
     Active Substance: CYTARABINE
     Dosage: 3000 MG/M2, Q12 HRS FOR 4 DOSES, IN WEEKS 11 AND 12
     Route: 042
  30. METHOTREXATE SODIUM. [Suspect]
     Active Substance: METHOTREXATE SODIUM
     Dosage: DOSE BY AGE, IN WEEKS 17, 20, 23
     Route: 037
  31. PREDNISONE. [Suspect]
     Active Substance: PREDNISONE
     Indication: ACUTE LYMPHOCYTIC LEUKAEMIA RECURRENT
     Dosage: 40 MG/M2/DAY DIVIDED TID FROM WEEK 1 TO WEEK 4 FOR 28 DAYS
     Route: 048

REACTIONS (2)
  - Aspergillus infection [Fatal]
  - H1N1 influenza [Fatal]
